FAERS Safety Report 10659796 (Version 1)
Quarter: 2014Q4

REPORT INFORMATION
  Report Type: Spontaneous
  Country: US (occurrence: None)
  Receive Date: 20141216
  Receipt Date: 20141216
  Transmission Date: 20150529
  Serious: Yes (Other)
  Sender: FDA-Public Use
  Company Number: None

PATIENT
  Age: 31 Year
  Sex: Female
  Weight: 57.61 kg

DRUGS (1)
  1. MIRENA [Suspect]
     Active Substance: LEVONORGESTREL

REACTIONS (9)
  - Dizziness [None]
  - Syncope [None]
  - Acne [None]
  - Drug ineffective [None]
  - Back pain [None]
  - Impaired work ability [None]
  - Anxiety [None]
  - Quality of life decreased [None]
  - Ovarian cyst [None]

NARRATIVE: CASE EVENT DATE: 20141215
